FAERS Safety Report 6287888-7 (Version None)
Quarter: 2009Q3

REPORT INFORMATION
  Report Type: 
  Country: None (occurrence: None)
  Receive Date: 20090729
  Receipt Date: 20090720
  Transmission Date: 20100115
  Serious: Yes (Hospitalization, Other)
  Sender: FDA-Public Use
  Company Number: US-JNJFOC-20090706966

PATIENT
  Sex: Male
  Weight: 77.11 kg

DRUGS (6)
  1. FENTANYL TRANSDERMAL SYSTEM [Suspect]
     Route: 062
  2. FENTANYL TRANSDERMAL SYSTEM [Suspect]
     Indication: BACK PAIN
     Route: 062
  3. TEGRETOL [Concomitant]
     Indication: NEURALGIA
  4. DARVOCET-N 100 [Concomitant]
     Indication: BREAKTHROUGH PAIN
     Dosage: 100-200MG /1-2 TABLETS
  5. HYDROXYZINE [Concomitant]
     Indication: PRURITUS
     Dosage: DAILY AS NEEDED
     Route: 048
  6. LYRICA [Concomitant]
     Indication: NEURALGIA
     Route: 048

REACTIONS (6)
  - ASTHENIA [None]
  - CHEST PAIN [None]
  - DEPRESSION [None]
  - HIATUS HERNIA [None]
  - HYPERHIDROSIS [None]
  - MALAISE [None]
